FAERS Safety Report 6811351-5 (Version None)
Quarter: 2010Q2

REPORT INFORMATION
  Report Type: 
  Country: None (occurrence: None)
  Receive Date: 20100630
  Receipt Date: 20100208
  Transmission Date: 20101027
  Serious: No
  Sender: FDA-Public Use
  Company Number: US-AMGEN-KDL392376

PATIENT
  Sex: Female
  Weight: 106.7 kg

DRUGS (8)
  1. PROCRIT [Suspect]
     Indication: MYELODYSPLASTIC SYNDROME
  2. INSULIN [Concomitant]
  3. DIOVAN [Concomitant]
  4. LASIX [Concomitant]
  5. LISINOPRIL [Concomitant]
  6. DARVOCET-N 100 [Concomitant]
  7. ALLERGY MEDICATION [Concomitant]
  8. GABAPENTIN [Concomitant]

REACTIONS (5)
  - ALOPECIA [None]
  - RASH MACULAR [None]
  - SEASONAL ALLERGY [None]
  - SKIN DISCOLOURATION [None]
  - SOMNOLENCE [None]
